FAERS Safety Report 9310991 (Version 1)
Quarter: 2013Q2

REPORT INFORMATION
  Report Type: Spontaneous
  Country: US (occurrence: US)
  Receive Date: 20130528
  Receipt Date: 20130528
  Transmission Date: 20140414
  Serious: Yes (Other)
  Sender: FDA-Public Use
  Company Number: US-JNJFOC-20130513612

PATIENT
  Age: 49 Year
  Sex: Male

DRUGS (5)
  1. INFLIXIMAB, RECOMBINANT [Suspect]
     Indication: COLITIS ULCERATIVE
     Route: 042
  2. INFLIXIMAB, RECOMBINANT [Suspect]
     Indication: COLITIS ULCERATIVE
     Route: 042
  3. HYDROCORTISONE [Concomitant]
     Indication: PREMEDICATION
     Route: 042
  4. ACETAMINOPHEN [Concomitant]
     Indication: PREMEDICATION
     Route: 065
  5. DIPHENHYDRAMINE [Concomitant]
     Indication: PREMEDICATION
     Route: 065

REACTIONS (3)
  - Iridocyclitis [Unknown]
  - Infusion related reaction [Unknown]
  - Therapeutic response decreased [Unknown]
